FAERS Safety Report 19693592 (Version 1)
Quarter: 2021Q3

REPORT INFORMATION
  Report Type: Spontaneous
  Country: DE (occurrence: DE)
  Receive Date: 20210813
  Receipt Date: 20210813
  Transmission Date: 20211014
  Serious: Yes (Other)
  Sender: FDA-Public Use
  Company Number: DE-VALIDUS PHARMACEUTICALS LLC-DE-VDP-2021-000316

PATIENT
  Age: 67 Year
  Sex: Female

DRUGS (2)
  1. FUROSEMIDE. [Suspect]
     Active Substance: FUROSEMIDE
     Indication: DIURETIC THERAPY
     Dosage: 20 MILLIGRAM, QD
     Route: 065
  2. SPIRONOLACTONE. [Suspect]
     Active Substance: SPIRONOLACTONE
     Indication: DIURETIC THERAPY
     Dosage: 50 MILLIGRAM, QD
     Route: 065

REACTIONS (8)
  - Skin ulcer [Recovering/Resolving]
  - Arteriosclerosis [Recovering/Resolving]
  - Condition aggravated [Recovering/Resolving]
  - Weight decreased [Recovering/Resolving]
  - Panniculitis lobular [Recovering/Resolving]
  - Calciphylaxis [Recovering/Resolving]
  - Skin necrosis [Recovering/Resolving]
  - Thrombosis [Recovering/Resolving]
